FAERS Safety Report 5030693-X (Version None)
Quarter: 2006Q2

REPORT INFORMATION
  Report Type: 
  Country: None (occurrence: None)
  Receive Date: 20060615
  Receipt Date: 20060602
  Transmission Date: 20061013
  Serious: Yes (Other)
  Sender: FDA-Public Use
  Company Number: 2006072272

PATIENT
  Age: 64 Year
  Sex: Female
  Weight: 76 kg

DRUGS (2)
  1. PHENYTOIN SODIUM [Suspect]
     Indication: ILL-DEFINED DISORDER
     Dosage: 1 D, ORAL; 500 MG (500 MG, 1 IN 1 D), INTRAVENOUS
     Route: 048
     Dates: start: 19820227, end: 19820308
  2. PHENYTOIN SODIUM [Suspect]
     Indication: ILL-DEFINED DISORDER
     Dosage: 1 D, ORAL; 500 MG (500 MG, 1 IN 1 D), INTRAVENOUS
     Route: 048
     Dates: start: 19820309, end: 19820328

REACTIONS (4)
  - LYMPHADENOPATHY [None]
  - PERIORBITAL OEDEMA [None]
  - PYREXIA [None]
  - RASH MORBILLIFORM [None]
